FAERS Safety Report 4380467-8 (Version None)
Quarter: 2004Q2

REPORT INFORMATION
  Report Type: 
  Country: None (occurrence: None)
  Receive Date: 20040614
  Receipt Date: 20040528
  Transmission Date: 20050107
  Serious: Yes (Other)
  Sender: FDA-Public Use
  Company Number: A-US2004-06482

PATIENT
  Age: 9 Year
  Sex: Male

DRUGS (5)
  1. TRACLEER [Suspect]
     Dosage: 31.25 MG, BID, ORAL : 16.125 MG QD, ORAL SEE IMAGE
     Route: 048
     Dates: start: 20030101, end: 20030301
  2. TRACLEER [Suspect]
     Dosage: 31.25 MG, BID, ORAL : 16.125 MG QD, ORAL SEE IMAGE
     Route: 048
     Dates: start: 20030301, end: 20030301
  3. TRACLEER [Suspect]
     Dosage: 31.25 MG, BID, ORAL : 16.125 MG QD, ORAL SEE IMAGE
     Route: 048
     Dates: start: 20030301
  4. TRACLEER [Suspect]
     Dosage: 31.25 MG, BID, ORAL : 16.125 MG QD, ORAL SEE IMAGE
     Route: 048
     Dates: start: 20030320
  5. TRACLEER [Suspect]
     Dosage: 31.25 MG, BID, ORAL : 16.125 MG QD, ORAL SEE IMAGE
     Route: 048
     Dates: start: 20030409

REACTIONS (3)
  - ABNORMAL BEHAVIOUR [None]
  - FLUSHING [None]
  - HEART RATE INCREASED [None]
